FAERS Safety Report 5988190-0 (Version None)
Quarter: 2008Q4

REPORT INFORMATION
  Report Type: 
  Country: None (occurrence: None)
  Receive Date: 20081204
  Receipt Date: 20081031
  Transmission Date: 20090506
  Serious: No
  Sender: FDA-Public Use
  Company Number: C-08-0075-W

PATIENT
  Age: 44 Year
  Sex: Male
  Weight: 94.3482 kg

DRUGS (3)
  1. CEFTRIAXONE [Suspect]
     Indication: BRONCHITIS
     Dosage: 1GM/INJECTED (GLUTEAL); SINGLE DOSE
  2. CEFTRIAXONE [Suspect]
     Indication: SINUSITIS
     Dosage: 1GM/INJECTED (GLUTEAL); SINGLE DOSE
  3. ORAL ANTIBIOTIC [Concomitant]

REACTIONS (2)
  - INJECTION SITE PAIN [None]
  - INJECTION SITE PRURITUS [None]
